FAERS Safety Report 11461305 (Version 1)
Quarter: 2015Q3

REPORT INFORMATION
  Report Type: Spontaneous
  Country: US (occurrence: US)
  Receive Date: 20150831
  Receipt Date: 20150831
  Transmission Date: 20151125
  Serious: No
  Sender: FDA-Public Use
  Company Number: US-ELI_LILLY_AND_COMPANY-US201006007701

PATIENT
  Age: 42 Year
  Sex: Female

DRUGS (5)
  1. METFORMIN [Concomitant]
     Active Substance: METFORMIN HYDROCHLORIDE
  2. CYMBALTA [Suspect]
     Active Substance: DULOXETINE HYDROCHLORIDE
     Indication: MENOPAUSAL SYMPTOMS
     Dosage: 60 MG, DAILY (1/D)
  3. CYMBALTA [Suspect]
     Active Substance: DULOXETINE HYDROCHLORIDE
     Dosage: 30 MG, DAILY (1/D)
  4. HORMONES [Concomitant]
     Active Substance: UNSPECIFIED INGREDIENT
  5. VITAMINS [Concomitant]
     Active Substance: VITAMINS

REACTIONS (3)
  - Feeling abnormal [Not Recovered/Not Resolved]
  - Off label use [Recovered/Resolved]
  - Drug withdrawal syndrome [Not Recovered/Not Resolved]
